FAERS Safety Report 19638473 (Version 2)
Quarter: 2021Q3

REPORT INFORMATION
  Report Type: Spontaneous
  Country: US (occurrence: US)
  Receive Date: 20210729
  Receipt Date: 20210810
  Transmission Date: 20211014
  Serious: No
  Sender: FDA-Public Use
  Company Number: US-PFIZER INC-202100918374

PATIENT
  Sex: Female

DRUGS (3)
  1. LORAZEPAM. [Suspect]
     Active Substance: LORAZEPAM
     Dosage: UNK
  2. ZOLOFT [Suspect]
     Active Substance: SERTRALINE HYDROCHLORIDE
     Dosage: UNK
  3. WELLBUTRIN [Suspect]
     Active Substance: BUPROPION HYDROCHLORIDE
     Dosage: UNK

REACTIONS (1)
  - Drug ineffective [Unknown]
